FAERS Safety Report 6538424-9 (Version None)
Quarter: 2010Q1

REPORT INFORMATION
  Report Type: 
  Country: None (occurrence: None)
  Receive Date: 20100114
  Receipt Date: 20090826
  Transmission Date: 20100710
  Serious: No
  Sender: FDA-Public Use
  Company Number: US-TYCO HEALTHCARE/MALLINCKRODT-T200901592

PATIENT
  Sex: Female
  Weight: 79.819 kg

DRUGS (4)
  1. OXYCODONE HCL AND ACETAMINOPHEN [Suspect]
     Indication: ARTHRALGIA
     Dosage: 1 OR 2 EVERY 6 HOURS PRN
     Dates: start: 20090501, end: 20090101
  2. IBUPROFEN [Suspect]
     Indication: ARTHRALGIA
     Dosage: 800 MG, TID PRN WITH MEALS
     Route: 048
     Dates: start: 20090501, end: 20090508
  3. CELEBREX [Suspect]
     Indication: ARTHRALGIA
     Dosage: 200 MG, QD
     Route: 048
     Dates: start: 20090509, end: 20090101
  4. EXJADE [Concomitant]
     Indication: HAEMOCHROMATOSIS
     Dosage: 500 MG, TID
     Route: 048
     Dates: start: 20050501

REACTIONS (6)
  - ABDOMINAL PAIN [None]
  - FEELING ABNORMAL [None]
  - HEART RATE DECREASED [None]
  - NAUSEA [None]
  - PARAESTHESIA ORAL [None]
  - RESPIRATORY RATE DECREASED [None]
